FAERS Safety Report 5954890-1 (Version None)
Quarter: 2008Q4

REPORT INFORMATION
  Report Type: 
  Country: None (occurrence: None)
  Receive Date: 20081117
  Receipt Date: 20081107
  Transmission Date: 20090506
  Serious: Yes (Death, Life-Threatening)
  Sender: FDA-Public Use
  Company Number: FR-NOVOPROD-281031

PATIENT
  Sex: Male

DRUGS (9)
  1. NOVOSEVEN [Suspect]
     Indication: HAEMORRHAGE
     Dosage: 4.8 MG, BID
     Route: 042
     Dates: start: 20080916, end: 20080916
  2. AMLOD [Concomitant]
     Indication: HYPERTENSION
  3. COTAREG [Concomitant]
     Indication: HYPERTENSION
  4. AUGMENTIN '125' [Concomitant]
     Dosage: 2 G, UNK
  5. PERFALGAN [Concomitant]
     Dosage: 1 G, UNK
  6. MORPHIN                            /00036302/ [Concomitant]
     Dosage: 2 MG, UNK
  7. CALCIUM [Concomitant]
  8. PLATELETS [Concomitant]
     Dosage: 10 U, QD
     Route: 042
     Dates: start: 20080914, end: 20080914
  9. PLATELETS [Concomitant]
     Dates: start: 20080915, end: 20080915

REACTIONS (3)
  - ACUTE RESPIRATORY DISTRESS SYNDROME [None]
  - CONDITION AGGRAVATED [None]
  - RHABDOMYOLYSIS [None]
